FAERS Safety Report 18937442 (Version 1)
Quarter: 2021Q1

REPORT INFORMATION
  Report Type: Spontaneous
  Country: NL (occurrence: NL)
  Receive Date: 20210225
  Receipt Date: 20210225
  Transmission Date: 20210420
  Serious: Yes (Other)
  Sender: FDA-Public Use
  Company Number: NL-ACCORD-218136

PATIENT
  Sex: Male
  Weight: 105 kg

DRUGS (6)
  1. ALLOPURINOL. [Suspect]
     Active Substance: ALLOPURINOL
     Indication: GOUT
     Dosage: TABLET 100MG?1X DAILY 1 TABLET
     Dates: start: 20201224
  2. ACENOCOUMAROL [Concomitant]
     Active Substance: ACENOCOUMAROL
     Indication: PRODUCT USED FOR UNKNOWN INDICATION
     Dosage: TABLET, 1 MG (MILLIGRAM)
  3. FLUTICASONE. [Concomitant]
     Active Substance: FLUTICASONE
     Indication: PRODUCT USED FOR UNKNOWN INDICATION
     Dosage: CREAM 0.5 MG/G (MILLIGRAM PER GRAM)
  4. BUMETANIDE. [Concomitant]
     Active Substance: BUMETANIDE
     Indication: PRODUCT USED FOR UNKNOWN INDICATION
     Dosage: TABLET, 2 MG (MILLIGRAM)
  5. MACROGOL/MACROGOL STEARATE [Concomitant]
     Active Substance: POLYETHYLENE GLYCOLS
     Indication: PRODUCT USED FOR UNKNOWN INDICATION
     Dosage: SALTS POWDER FOR DRINK
  6. LOSARTAN. [Concomitant]
     Active Substance: LOSARTAN
     Indication: PRODUCT USED FOR UNKNOWN INDICATION
     Dosage: FILM?COATED TABLET, 50 MG (MILLIGRAM)

REACTIONS (2)
  - Hypothermia [Not Recovered/Not Resolved]
  - Poor quality sleep [Not Recovered/Not Resolved]
